FAERS Safety Report 4706454-5 (Version None)
Quarter: 2005Q3

REPORT INFORMATION
  Report Type: 
  Country: None (occurrence: None)
  Receive Date: 20050705
  Receipt Date: 20050629
  Transmission Date: 20060218
  Serious: Yes (Other)
  Sender: FDA-Public Use
  Company Number: US-GLAXOSMITHKLINE-A0564619A

PATIENT
  Age: 29 Year
  Sex: Female

DRUGS (3)
  1. LAMICTAL [Suspect]
     Route: 048
  2. RISPERDAL [Suspect]
  3. METHADONE HCL [Suspect]

REACTIONS (8)
  - EYELID MARGIN CRUSTING [None]
  - HEADACHE [None]
  - HEMIPARESIS [None]
  - MUSCULOSKELETAL STIFFNESS [None]
  - NAUSEA [None]
  - SPUTUM DISCOLOURED [None]
  - TORTICOLLIS [None]
  - TREATMENT NONCOMPLIANCE [None]
